FAERS Safety Report 6908428-2 (Version None)
Quarter: 2010Q3

REPORT INFORMATION
  Report Type: 
  Country: None (occurrence: None)
  Receive Date: 20100805
  Receipt Date: 20100726
  Transmission Date: 20110219
  Serious: No
  Sender: FDA-Public Use
  Company Number: US-JNJFOC-20100708454

PATIENT
  Sex: Male
  Weight: 80.74 kg

DRUGS (11)
  1. FENTANYL CITRATE [Suspect]
     Indication: PAIN
     Route: 062
  2. FENTANYL CITRATE [Suspect]
     Route: 062
  3. CYMBALTA [Concomitant]
     Indication: DEPRESSION
     Route: 048
  4. TEGRETOL-XR [Concomitant]
     Indication: HYPERTENSION
     Route: 048
  5. DIGOXIN [Concomitant]
     Indication: MYOCARDIAL INFARCTION
     Route: 048
  6. DIGOXIN [Concomitant]
     Dosage: 1.5 EVERY OTHER DAY
     Route: 048
  7. DIGOXIN [Concomitant]
     Indication: CEREBROVASCULAR ACCIDENT
     Dosage: 1.5 EVERY OTHER DAY
     Route: 048
  8. DIGOXIN [Concomitant]
     Route: 048
  9. COUMADIN [Concomitant]
     Indication: ANTICOAGULANT THERAPY
     Route: 048
  10. ATENOLOL [Concomitant]
     Indication: CARDIAC DISORDER
     Route: 048
  11. SIMVASTATIN [Concomitant]
     Indication: BLOOD CHOLESTEROL
     Route: 048

REACTIONS (3)
  - APPLICATION SITE IRRITATION [None]
  - APPLICATION SITE PRURITUS [None]
  - WRONG TECHNIQUE IN DRUG USAGE PROCESS [None]
